FAERS Safety Report 9383666 (Version 1)
Quarter: 2013Q3

REPORT INFORMATION
  Report Type: Spontaneous
  Country: US (occurrence: US)
  Receive Date: 20130704
  Receipt Date: 20130704
  Transmission Date: 20140515
  Serious: No
  Sender: FDA-Public Use
  Company Number: US-BAYER-2013-081780

PATIENT
  Age: 63 Year
  Sex: Female
  Weight: 43.08 kg

DRUGS (4)
  1. ALEVE CAPLET [Suspect]
     Dosage: 1 DF, ONCE
     Route: 048
     Dates: start: 20130626, end: 20130626
  2. MULTIVITAMIN [Concomitant]
  3. CALCIUM [Concomitant]
  4. FISH OIL [Concomitant]

REACTIONS (1)
  - Abdominal discomfort [Not Recovered/Not Resolved]
